FAERS Safety Report 9375122 (Version 1)
Quarter: 2013Q2

REPORT INFORMATION
  Report Type: Spontaneous
  Country: GB (occurrence: GB)
  Receive Date: 20130628
  Receipt Date: 20130628
  Transmission Date: 20140414
  Serious: Yes (Other)
  Sender: FDA-Public Use
  Company Number: GB-ELI_LILLY_AND_COMPANY-GB201306006660

PATIENT
  Age: 66 Year
  Sex: Female

DRUGS (2)
  1. OLANZAPINE [Suspect]
     Indication: MAJOR DEPRESSION
     Dosage: UNK
     Route: 048
  2. CITALOPRAM [Suspect]
     Indication: MAJOR DEPRESSION
     Dosage: UNK
     Route: 048

REACTIONS (1)
  - Electrocardiogram QT prolonged [Recovered/Resolved]
